FAERS Safety Report 11285841 (Version 5)
Quarter: 2015Q4

REPORT INFORMATION
  Report Type: Spontaneous
  Country: IE (occurrence: IE)
  Receive Date: 20150721
  Receipt Date: 20151124
  Transmission Date: 20160304
  Serious: Yes (Hospitalization)
  Sender: FDA-Public Use
  Company Number: IE-009507513-1507IRL008379

PATIENT
  Sex: Male

DRUGS (2)
  1. SODIUM CHLORIDE. [Suspect]
     Active Substance: SODIUM CHLORIDE
     Indication: PRODUCT USED FOR UNKNOWN INDICATION
     Dosage: 100 ML, QD
     Route: 041
  2. DAPTOMYCIN. [Suspect]
     Active Substance: DAPTOMYCIN
     Indication: PRODUCT USED FOR UNKNOWN INDICATION
     Dosage: 500 MG IN 100 ML SODIUM CHLORIDE
     Route: 041
     Dates: start: 20150709

REACTIONS (4)
  - Diarrhoea [Unknown]
  - Wound infection [Unknown]
  - Nausea [Unknown]
  - Wound [Unknown]

NARRATIVE: CASE EVENT DATE: 20150710
